FAERS Safety Report 8963420 (Version 1)
Quarter: 2012Q4

REPORT INFORMATION
  Report Type: 
  Country: US (occurrence: US)
  Receive Date: 20121214
  Receipt Date: 20121214
  Transmission Date: 20130627
  Serious: No
  Sender: FDA-Public Use
  Company Number: US-BIOGENIDEC-2012BI058722

PATIENT
  Sex: Male

DRUGS (1)
  1. TYSABRI [Suspect]
     Indication: MULTIPLE SCLEROSIS
     Route: 042
     Dates: start: 20111026

REACTIONS (6)
  - Impaired driving ability [Not Recovered/Not Resolved]
  - Somnolence [Recovered/Resolved]
  - Central nervous system lesion [Not Recovered/Not Resolved]
  - Multiple sclerosis [Not Recovered/Not Resolved]
  - Headache [Recovered/Resolved]
  - Asthenia [Not Recovered/Not Resolved]
